FAERS Safety Report 25311939 (Version 1)
Quarter: 2025Q2

REPORT INFORMATION
  Report Type: Spontaneous
  Country: US (occurrence: None)
  Receive Date: 20250513
  Receipt Date: 20250513
  Transmission Date: 20250717
  Serious: Yes (unspecified)
  Sender: FDA-CTU
  Company Number: None

PATIENT
  Age: 52 Year
  Sex: Male
  Weight: 66.6 kg

DRUGS (1)
  1. AZO URINARY PAIN RELIEF MAXIMUM STRENGTH [Suspect]
     Active Substance: PHENAZOPYRIDINE HYDROCHLORIDE
     Indication: Urinary tract infection
     Dates: start: 20250507, end: 20250508

REACTIONS (7)
  - Heart rate increased [None]
  - Abdominal pain upper [None]
  - Dizziness [None]
  - Insomnia [None]
  - Activities of daily living decreased [None]
  - Blood pressure increased [None]
  - Therapy cessation [None]

NARRATIVE: CASE EVENT DATE: 20250507
